FAERS Safety Report 19272136 (Version 2)
Quarter: 2021Q2

REPORT INFORMATION
  Report Type: Spontaneous
  Country: GB (occurrence: GB)
  Receive Date: 20210518
  Receipt Date: 20210528
  Transmission Date: 20210717
  Serious: Yes (Hospitalization, Disabling)
  Sender: FDA-Public Use
  Company Number: GB-MYLANLABS-2021M1026662

PATIENT
  Age: 34 Year
  Sex: Female
  Weight: 146 kg

DRUGS (1)
  1. CETIRIZINE [Suspect]
     Active Substance: CETIRIZINE HYDROCHLORIDE
     Indication: SEASONAL ALLERGY
     Dosage: UNK
     Route: 065

REACTIONS (19)
  - Motor dysfunction [Unknown]
  - Dysarthria [Recovered/Resolved]
  - Excessive eye blinking [Recovered/Resolved]
  - Ageusia [Recovered/Resolved]
  - Muscular weakness [Recovered/Resolved]
  - Sensory loss [Unknown]
  - Pyrexia [Recovered/Resolved]
  - Decreased appetite [Recovered/Resolved]
  - Paraesthesia [Recovered/Resolved]
  - Lacrimation increased [Recovered/Resolved]
  - Syphilis [Recovered/Resolved]
  - Guillain-Barre syndrome [Not Recovered/Not Resolved]
  - Demyelination [Recovered/Resolved]
  - Balance disorder [Recovered/Resolved]
  - Facial paralysis [Recovered/Resolved]
  - Facial paresis [Recovered/Resolved]
  - Hypoaesthesia [Recovered/Resolved]
  - Vision blurred [Recovered/Resolved]
  - Pituitary tumour benign [Unknown]

NARRATIVE: CASE EVENT DATE: 20210329
